FAERS Safety Report 20711520 (Version 1)
Quarter: 2022Q2

REPORT INFORMATION
  Report Type: Other
  Country: GB (occurrence: GB)
  Receive Date: 20220414
  Receipt Date: 20220414
  Transmission Date: 20220721
  Serious: Yes (Other)
  Sender: FDA-Public Use
  Company Number: GB-DUCHESNAY-2021GB000109

PATIENT

DRUGS (4)
  1. OSPHENA [Suspect]
     Active Substance: OSPEMIFENE
     Indication: Menopausal symptoms
     Dosage: 60 MILLIGRAM, QD (60 MG 1 EVERY DAY)
     Route: 048
     Dates: start: 20201101
  2. BISOPROLOL [Concomitant]
     Active Substance: BISOPROLOL
     Indication: Product used for unknown indication
  3. VITAMINS [Concomitant]
     Active Substance: VITAMINS
     Indication: Product used for unknown indication
  4. PROBIOTIC [BIFIDOBACTERIUM BIFIDUM;BIFIDOBACTERIUM LACTIS;BIFIDOBACTER [Concomitant]
     Indication: Product used for unknown indication

REACTIONS (1)
  - Muscle spasms [Recovering/Resolving]

NARRATIVE: CASE EVENT DATE: 20210201
